FAERS Safety Report 5113218-X (Version None)
Quarter: 2006Q3

REPORT INFORMATION
  Report Type: 
  Country: None (occurrence: None)
  Receive Date: 20060920
  Receipt Date: 20060901
  Transmission Date: 20061208
  Serious: Yes (Hospitalization)
  Sender: FDA-Public Use
  Company Number: US200609001457

PATIENT
  Sex: Female
  Weight: 101.6 kg

DRUGS (6)
  1. ZYPREXA [Suspect]
     Indication: DEPRESSION
     Dosage: 5 MG,
     Dates: start: 20040101
  2. PROZAC [Concomitant]
  3. RISPERIDONE [Concomitant]
  4. WELLBUTRIN [Concomitant]
  5. EFFEXOR [Concomitant]
  6. ATENOLOL [Concomitant]

REACTIONS (2)
  - DIABETES MELLITUS [None]
  - MYOCARDIAL INFARCTION [None]
